FAERS Safety Report 15811904 (Version 1)
Quarter: 2019Q1

REPORT INFORMATION
  Report Type: Report from Study
  Country: CN (occurrence: CN)
  Receive Date: 20190111
  Receipt Date: 20190111
  Transmission Date: 20190417
  Serious: Yes (Other)
  Sender: FDA-Public Use
  Company Number: CN-ASTRAZENECA-2019SE04460

PATIENT

DRUGS (4)
  1. TICAGRELOR. [Suspect]
     Active Substance: TICAGRELOR
     Route: 048
  2. ASPIRIN. [Suspect]
     Active Substance: ASPIRIN
     Route: 048
  3. ASPIRIN. [Suspect]
     Active Substance: ASPIRIN
     Route: 048
  4. TICAGRELOR. [Suspect]
     Active Substance: TICAGRELOR
     Route: 048

REACTIONS (1)
  - Acute myocardial infarction [Unknown]
